FAERS Safety Report 7458297-X (Version None)
Quarter: 2011Q2

REPORT INFORMATION
  Report Type: 
  Country: None (occurrence: None)
  Receive Date: 20110504
  Receipt Date: 20110425
  Transmission Date: 20111010
  Serious: Yes (Hospitalization)
  Sender: FDA-Public Use
  Company Number: US-ASTRAZENECA-2011SE21451

PATIENT
  Age: 64 Year
  Sex: Female
  Weight: 63 kg

DRUGS (8)
  1. NEXIUM [Suspect]
     Indication: GASTROOESOPHAGEAL REFLUX DISEASE
     Route: 048
     Dates: start: 20101001
  2. ALENIA [Concomitant]
     Indication: ASTHMA
     Dosage: 6/200 MCG BID
     Route: 048
     Dates: start: 20090101
  3. ALENIA [Concomitant]
     Indication: EMPHYSEMA
     Dosage: 6/200 MCG BID
     Route: 048
     Dates: start: 20090101
  4. METICORTEN [Concomitant]
     Route: 048
     Dates: start: 20100101
  5. NUTRICAL [Concomitant]
     Indication: OSTEOPOROSIS
     Route: 048
  6. SINGULAIR [Suspect]
     Route: 065
     Dates: start: 20101001
  7. METICORTEN [Concomitant]
     Route: 048
     Dates: start: 20090101, end: 20100101
  8. PROTOS [Concomitant]
     Indication: OSTEOPOROSIS
     Route: 048

REACTIONS (8)
  - EAR INFECTION [None]
  - INCREASED APPETITE [None]
  - DIARRHOEA [None]
  - INTERVERTEBRAL DISC SPACE NARROWING [None]
  - OSTEOPOROSIS [None]
  - FRONTAL SINUS OPERATION [None]
  - SINUSITIS [None]
  - SOMNOLENCE [None]
